FAERS Safety Report 15590731 (Version 1)
Quarter: 2018Q4

REPORT INFORMATION
  Report Type: Spontaneous
  Country: US (occurrence: US)
  Receive Date: 20181101
  Receipt Date: 20181101
  Transmission Date: 20190205
  Serious: Yes (Death)
  Sender: FDA-Public Use
  Company Number: None

PATIENT
  Age: 56 Year
  Sex: Male

DRUGS (4)
  1. OLANZAPINE. [Concomitant]
     Active Substance: OLANZAPINE
  2. COSENTYX [Suspect]
     Active Substance: SECUKINUMAB
     Indication: PSORIASIS
     Dosage: ?          OTHER FREQUENCY:Q4WEEKS;?
     Route: 058
     Dates: start: 201810, end: 201810
  3. NYSTATIN. [Concomitant]
     Active Substance: NYSTATIN
  4. HYDROCO/APAP [Concomitant]
     Active Substance: ACETAMINOPHEN\HYDROCODONE

REACTIONS (1)
  - Liver disorder [None]

NARRATIVE: CASE EVENT DATE: 201810
